FAERS Safety Report 4749678-3 (Version None)
Quarter: 2005Q3

REPORT INFORMATION
  Report Type: 
  Country: None (occurrence: None)
  Receive Date: 20050822
  Receipt Date: 20050812
  Transmission Date: 20060218
  Serious: Yes (Hospitalization)
  Sender: FDA-Public Use
  Company Number: FR-ROCHE-414058

PATIENT
  Age: 55 Year
  Sex: Female

DRUGS (7)
  1. XENICAL [Suspect]
     Indication: OBESITY
     Route: 048
     Dates: start: 20050615, end: 20050705
  2. CITALOPRAM HYDROBROMIDE [Concomitant]
  3. AVLOCARDYL [Concomitant]
  4. IBUPROFEN [Concomitant]
     Dosage: TRADE NAME: ANTARENE
     Route: 048
     Dates: end: 20050705
  5. LEVOTHYROX [Concomitant]
     Route: 048
     Dates: end: 20050705
  6. EUPHYTOSE [Concomitant]
     Route: 048
     Dates: end: 20050705
  7. ENDOTELON [Concomitant]
     Route: 048
     Dates: start: 20050501, end: 20050705

REACTIONS (1)
  - THROMBOCYTOPENIC PURPURA [None]
